FAERS Safety Report 15621534 (Version 1)
Quarter: 2018Q4

REPORT INFORMATION
  Report Type: Spontaneous
  Country: ZA (occurrence: ZA)
  Receive Date: 20181115
  Receipt Date: 20181115
  Transmission Date: 20190205
  Serious: Yes (Death)
  Sender: FDA-Public Use
  Company Number: ZA-PFIZER INC-2018466785

PATIENT
  Age: 77 Year
  Sex: Female

DRUGS (8)
  1. ECOTRIN [Suspect]
     Active Substance: ASPIRIN
     Dosage: 81 MG, UNK
  2. BILOCOR [Suspect]
     Active Substance: BISOPROLOL FUMARATE
     Dosage: 5 MG, UNK
  3. TRUSTAN [Suspect]
     Active Substance: ESOMEPRAZOLE
     Dosage: 40 MG, UNK
  4. POTASSIUM CHLORIDE. [Suspect]
     Active Substance: POTASSIUM CHLORIDE
     Dosage: 600 MG, UNK
  5. LASIX [Suspect]
     Active Substance: FUROSEMIDE
     Dosage: 40 MG, UNK
  6. ASPAVOR [Suspect]
     Active Substance: ATORVASTATIN
     Dosage: 10 MG, UNK
  7. ADCO ZOPIMED [Suspect]
     Active Substance: ZOPICLONE
     Dosage: 7.5 MG, UNK
  8. ARYCOR [Suspect]
     Active Substance: AMIODARONE HYDROCHLORIDE
     Dosage: 200 MG, UNK

REACTIONS (1)
  - Neoplasm malignant [Fatal]
